FAERS Safety Report 4318114-3 (Version None)
Quarter: 2004Q1

REPORT INFORMATION
  Report Type: 
  Country: None (occurrence: None)
  Receive Date: 20040315
  Receipt Date: 20040310
  Transmission Date: 20041129
  Serious: Yes (Hospitalization, Other)
  Sender: FDA-Public Use
  Company Number: US-JNJFOC-20040205732

PATIENT
  Age: 59 Year
  Sex: Male

DRUGS (10)
  1. SPORANOX [Suspect]
     Indication: FUNGAL INFECTION
     Dosage: 100 MG, 56 IN 24 HOUR, ORAL
     Route: 048
     Dates: start: 19960501, end: 20040101
  2. GLUCOTROL [Concomitant]
  3. AVOPRO (IRBESARTAN) [Concomitant]
  4. TOPROL X (METOPROLOL SUCCINATE) [Concomitant]
  5. LOTRISONE (LOTRISONE) [Concomitant]
  6. MINOCYCLIN (MINOCYCLIN) [Concomitant]
  7. CLONIDINE [Concomitant]
  8. POTASSIUM CHLORIDE [Concomitant]
  9. FUROSEMIDE [Concomitant]
  10. ALPRAZOLAM [Concomitant]

REACTIONS (11)
  - BACTERAEMIA [None]
  - CARDIAC DISORDER [None]
  - CORONARY ARTERY SURGERY [None]
  - DIABETES MELLITUS NON-INSULIN-DEPENDENT [None]
  - FALL [None]
  - FOOT FRACTURE [None]
  - MYOCARDIAL INFARCTION [None]
  - RASH [None]
  - RIB EXCISION [None]
  - STAPHYLOCOCCAL INFECTION [None]
  - TREATMENT NONCOMPLIANCE [None]
